FAERS Safety Report 13591868 (Version 1)
Quarter: 2017Q2

REPORT INFORMATION
  Report Type: Spontaneous
  Country: ES (occurrence: ES)
  Receive Date: 20170530
  Receipt Date: 20170530
  Transmission Date: 20170830
  Serious: Yes (Other)
  Sender: FDA-Public Use
  Company Number: ES-PFIZER INC-2017230492

PATIENT
  Age: 56 Year
  Sex: Female

DRUGS (15)
  1. TRAZODONE [Concomitant]
     Active Substance: TRAZODONE HYDROCHLORIDE
     Indication: SLEEP DISORDER
     Dosage: 50 MG, 1X/DAY
  2. VERISCAL D [Concomitant]
     Indication: OSTEOPOROSIS
     Dosage: 1 DF, 1X/DAY
  3. OXYCONTIN [Concomitant]
     Active Substance: OXYCODONE HYDROCHLORIDE
     Indication: PAIN
     Dosage: UNK, 2X/DAY
  4. DULOXETINE. [Concomitant]
     Active Substance: DULOXETINE
     Dosage: 30 MG, 1X/DAY
  5. OCULOTECT [Concomitant]
     Indication: DRY EYE
     Dosage: 50 MG/ML, AS NEEDED
  6. OMEPRAZOLE. [Concomitant]
     Active Substance: OMEPRAZOLE
     Indication: PROPHYLAXIS
     Dosage: 20 MG, 1X/DAY
  7. SIMVASTATIN. [Concomitant]
     Active Substance: SIMVASTATIN
     Indication: HYPERCHOLESTEROLAEMIA
     Dosage: 20 MG, 1X/DAY
  8. ENALAPRIL [Concomitant]
     Active Substance: ENALAPRIL
     Indication: HYPERTENSION
     Dosage: 10 MG, 1X/DAY
  9. NASONEX [Concomitant]
     Active Substance: MOMETASONE FUROATE
     Indication: DYSPNOEA
     Dosage: UNK, 2X/DAY
  10. ROBAXISAL [Concomitant]
     Active Substance: ASPIRIN\METHOCARBAMOL
     Indication: MUSCLE CONTRACTURE
     Dosage: UNK, 3X/DAY
  11. SOMAVERT [Suspect]
     Active Substance: PEGVISOMANT
     Indication: ACROMEGALY
     Dosage: 10 MG, 1X/DAY
     Route: 058
     Dates: start: 20061001
  12. NOLOTIL [Concomitant]
     Active Substance: METAMIZOLE
     Indication: PAIN
     Dosage: 1 DF, EVERY 6 OR 8 HOURS
  13. ROBAXISAL [Concomitant]
     Active Substance: ASPIRIN\METHOCARBAMOL
     Indication: MYOSITIS
  14. TRILEPTAL [Concomitant]
     Active Substance: OXCARBAZEPINE
     Indication: RELAXATION THERAPY
     Dosage: 150 MG, 2X/DAY
  15. SINUS INHALACIONES [Concomitant]
     Indication: THERAPEUTIC PROCEDURE
     Dosage: UNK, 2X/DAY

REACTIONS (6)
  - Underdose [Unknown]
  - Injection site pain [Unknown]
  - Product quality issue [Unknown]
  - Injection site injury [Unknown]
  - Nasal polyps [Unknown]
  - Gingival polyp [Unknown]
